FAERS Safety Report 18436594 (Version 1)
Quarter: 2020Q4

REPORT INFORMATION
  Report Type: Spontaneous
  Country: US (occurrence: US)
  Receive Date: 20201028
  Receipt Date: 20201028
  Transmission Date: 20210114
  Serious: Yes (Hospitalization)
  Sender: FDA-Public Use
  Company Number: None

PATIENT
  Age: 64 Year
  Sex: Female
  Weight: 99.1 kg

DRUGS (1)
  1. SODIUM FERRIC GLUCONATE [Suspect]
     Active Substance: SODIUM FERRIC GLUCONATE COMPLEX
     Indication: ANAEMIA
     Route: 041
     Dates: start: 20200922, end: 20200922

REACTIONS (5)
  - Rash pruritic [None]
  - Asthenia [None]
  - Feeling abnormal [None]
  - Swelling [None]
  - Movement disorder [None]

NARRATIVE: CASE EVENT DATE: 20200922
